FAERS Safety Report 10506855 (Version 1)
Quarter: 2014Q3

REPORT INFORMATION
  Report Type: Spontaneous
  Country: US (occurrence: None)
  Receive Date: 20140915
  Receipt Date: 20140915
  Transmission Date: 20150326
  Serious: Yes (Other)
  Sender: FDA-Public Use
  Company Number: 2013-US-000098

PATIENT
  Age: 33 Year
  Sex: Female
  Weight: 52.2 kg

DRUGS (10)
  1. PRAZOSIN (PRAZOSIN HYDROCHLORIDE) [Concomitant]
  2. NORTRIPTYLINE (NOTRRIPTYLINE HYDROCHLORIDE) [Concomitant]
  3. ADDERALL [Concomitant]
     Active Substance: AMPHETAMINE ASPARTATE\AMPHETAMINE SULFATE\DEXTROAMPHETAMINE SACCHARATE\DEXTROAMPHETAMINE SULFATE
  4. CYMBALTA [Concomitant]
     Active Substance: DULOXETINE HYDROCHLORIDE
  5. PRILOSEC (OMEPRAZOLE MAGNESIUM) [Concomitant]
  6. OXYCODONE [Concomitant]
     Active Substance: OXYCODONE
  7. XYREM [Suspect]
     Active Substance: SODIUM OXYBATE
     Indication: FIBROMYALGIA
  8. XYREM [Suspect]
     Active Substance: SODIUM OXYBATE
     Indication: SOMNOLENCE
  9. CHANTIX (VARENICLINE TARTRATE) [Concomitant]
     Active Substance: VARENICLINE TARTRATE
  10. CLONAZEPAM. [Concomitant]
     Active Substance: CLONAZEPAM

REACTIONS (6)
  - Intentional product misuse [None]
  - Gastric disorder [None]
  - Nausea [None]
  - Dyspepsia [None]
  - Weight decreased [None]
  - Poor quality sleep [None]

NARRATIVE: CASE EVENT DATE: 201111
